FAERS Safety Report 5272854-0 (Version None)
Quarter: 2007Q1

REPORT INFORMATION
  Report Type: 
  Country: None (occurrence: None)
  Receive Date: 20070322
  Receipt Date: 20070312
  Transmission Date: 20070707
  Serious: Yes (Hospitalization)
  Sender: FDA-Public Use
  Company Number: 2007AP01501

PATIENT
  Age: 15 Year
  Sex: Female

DRUGS (10)
  1. OMEPRAZOLE [Suspect]
     Route: 048
     Dates: start: 20051014
  2. TROPISETRON [Suspect]
     Route: 042
  3. COLASPASE NOS [Suspect]
     Indication: ACUTE LYMPHOCYTIC LEUKAEMIA
     Dosage: THOUSAND INTERNAL
     Route: 030
  4. VINCRISTINE SULFATE [Suspect]
     Route: 042
     Dates: start: 20051021
  5. DAUNORUBICIN HCL [Suspect]
     Route: 042
     Dates: start: 20051021
  6. PREDNISOLONE [Concomitant]
     Route: 048
     Dates: start: 20051014
  7. LORAZEPAM [Concomitant]
     Route: 048
  8. LACTULOSE [Concomitant]
     Route: 048
  9. TOBRAMYCIN [Concomitant]
     Route: 042
     Dates: start: 20051113
  10. TAZOCIN [Concomitant]
     Route: 042
     Dates: start: 20051014

REACTIONS (7)
  - BLOOD CHOLESTEROL INCREASED [None]
  - BLOOD TRIGLYCERIDES INCREASED [None]
  - CEREBRAL VENOUS THROMBOSIS [None]
  - CONVULSION [None]
  - HEPATOMEGALY [None]
  - HYPERAMMONAEMIA [None]
  - LIVER FUNCTION TEST ABNORMAL [None]
